FAERS Safety Report 9008339 (Version 1)
Quarter: 2013Q1

REPORT INFORMATION
  Report Type: Spontaneous
  Country: US (occurrence: US)
  Receive Date: 20130111
  Receipt Date: 20130111
  Transmission Date: 20140127
  Serious: Yes (Other)
  Sender: FDA-Public Use
  Company Number: PHEH2013US000794

PATIENT
  Sex: Male

DRUGS (4)
  1. ZOMETA [Suspect]
  2. REVLIMID [Suspect]
     Indication: PLASMA CELL MYELOMA
     Dosage: 25 MG, UNK
     Route: 048
     Dates: start: 20121102
  3. DECADRON [Suspect]
  4. VELCADE [Suspect]

REACTIONS (6)
  - Mood altered [Unknown]
  - Neuropathy peripheral [Unknown]
  - Insomnia [Unknown]
  - Paraesthesia [Unknown]
  - Influenza like illness [Unknown]
  - Local swelling [Unknown]
